FAERS Safety Report 13079911 (Version 3)
Quarter: 2017Q1

REPORT INFORMATION
  Report Type: Spontaneous
  Country: IT (occurrence: IT)
  Receive Date: 20170103
  Receipt Date: 20170120
  Transmission Date: 20170428
  Serious: Yes (Other)
  Sender: FDA-Public Use
  Company Number: IT-BRISTOL-MYERS SQUIBB COMPANY-BMS-2016-111395

PATIENT
  Age: 55 Year
  Sex: Male
  Weight: 76 kg

DRUGS (1)
  1. NIVOLUMAB [Suspect]
     Active Substance: NIVOLUMAB
     Indication: LUNG ADENOCARCINOMA
     Dosage: 225 MG, QCYCLE
     Route: 042
     Dates: start: 20161006

REACTIONS (3)
  - Pruritus [Recovering/Resolving]
  - Diarrhoea [Recovering/Resolving]
  - Depression [Recovering/Resolving]

NARRATIVE: CASE EVENT DATE: 20161022
